FAERS Safety Report 5163255-4 (Version None)
Quarter: 2006Q4

REPORT INFORMATION
  Report Type: 
  Country: None (occurrence: None)
  Receive Date: 20061121
  Receipt Date: 20061109
  Transmission Date: 20070319
  Serious: Yes (Death)
  Sender: FDA-Public Use
  Company Number: 2006139598

PATIENT
  Age: 45 Year

DRUGS (4)
  1. DIPHENHYDRAMINE HCL [Suspect]
  2. HALOPERIDOL [Suspect]
  3. BENZTROPINE MESYLATE [Suspect]
  4. ALL OTHER THERAPEUTIC PRODUCTS (ALL OTHER THERAPEUTIC PRODUCTS) [Suspect]

REACTIONS (1)
  - UNEVALUABLE EVENT [None]
